FAERS Safety Report 9806505 (Version 2)
Quarter: 2014Q1

REPORT INFORMATION
  Report Type: Spontaneous
  Country: US (occurrence: US)
  Receive Date: 20140109
  Receipt Date: 20140303
  Transmission Date: 20141002
  Serious: Yes (Death)
  Sender: FDA-Public Use
  Company Number: US-PFIZER INC-2014005630

PATIENT
  Age: 81 Year
  Sex: Female

DRUGS (1)
  1. AROMASIN [Suspect]
     Indication: BREAST CANCER
     Dosage: 25 MG, UNK
     Dates: start: 20101022

REACTIONS (4)
  - Second primary malignancy [Fatal]
  - Lung carcinoma cell type unspecified stage IV [Fatal]
  - Pneumonia [Fatal]
  - Thrombosis [Fatal]
